FAERS Safety Report 4528108-0 (Version None)
Quarter: 2004Q4

REPORT INFORMATION
  Report Type: 
  Country: None (occurrence: None)
  Receive Date: 20041130
  Receipt Date: 20040902
  Transmission Date: 20050328
  Serious: No
  Sender: FDA-Public Use
  Company Number: 702284

PATIENT
  Age: 38 Year
  Sex: Female

DRUGS (1)
  1. AMEVIVE [Suspect]
     Indication: PSORIASIS
     Dates: start: 20040416, end: 20040625

REACTIONS (1)
  - DRUG INEFFECTIVE [None]
